FAERS Safety Report 7440103-0 (Version None)
Quarter: 2011Q2

REPORT INFORMATION
  Report Type: 
  Country: None (occurrence: None)
  Receive Date: 20110427
  Receipt Date: 20110420
  Transmission Date: 20111010
  Serious: Yes (Death, Other)
  Sender: FDA-Public Use
  Company Number: US-CELGENEUS-163-21880-11042795

PATIENT
  Age: 79 Year
  Sex: Female

DRUGS (8)
  1. QVAR 40 [Concomitant]
     Route: 065
  2. FLONASE [Concomitant]
     Route: 065
  3. VICODIN [Concomitant]
     Route: 065
  4. PROAIR HFA [Concomitant]
     Route: 065
  5. ASPIRIN [Concomitant]
     Route: 065
  6. REVLIMID [Suspect]
     Dosage: 5 MILLIGRAM
     Route: 048
     Dates: start: 20100701, end: 20100701
  7. REVLIMID [Suspect]
     Indication: MULTIPLE MYELOMA
     Dosage: 10 MILLIGRAM
     Route: 048
     Dates: start: 20100601, end: 20100701
  8. IMIPRAMINE [Concomitant]
     Route: 065

REACTIONS (4)
  - FATIGUE [None]
  - HAEMOGLOBIN DECREASED [None]
  - HAEMATOCRIT DECREASED [None]
  - DEATH [None]
